FAERS Safety Report 6957020-2 (Version None)
Quarter: 2010Q3

REPORT INFORMATION
  Report Type: 
  Country: None (occurrence: None)
  Receive Date: 20100827
  Receipt Date: 20100827
  Transmission Date: 20110219
  Serious: Yes (Disabling)
  Sender: FDA-Public Use
  Company Number: None

PATIENT
  Age: 25 Year
  Sex: Male
  Weight: 90.7194 kg

DRUGS (2)
  1. GEODON [Suspect]
     Indication: AGITATION
     Dosage: 10MG 1X IM, 1 DOSE
     Route: 030
     Dates: start: 20100626, end: 20100626
  2. GEODON [Suspect]
     Indication: SCHIZOPHRENIA, PARANOID TYPE
     Dosage: 10MG 1X IM, 1 DOSE
     Route: 030
     Dates: start: 20100626, end: 20100626

REACTIONS (1)
  - SWOLLEN TONGUE [None]
